FAERS Safety Report 25211442 (Version 2)
Quarter: 2025Q2

REPORT INFORMATION
  Report Type: Report from Study
  Country: US (occurrence: US)
  Receive Date: 20250417
  Receipt Date: 20250430
  Transmission Date: 20250716
  Serious: Yes (Other)
  Sender: ABBVIE
  Company Number: US-ABBVIE-6232591

PATIENT
  Age: 61 Year
  Sex: Male

DRUGS (2)
  1. VENCLEXTA [Suspect]
     Active Substance: VENETOCLAX
     Indication: Chronic lymphocytic leukaemia
     Dosage: LAST ADMIN DATE: 2025
     Route: 048
     Dates: start: 202503
  2. VENCLEXTA [Suspect]
     Active Substance: VENETOCLAX
     Indication: Chronic lymphocytic leukaemia
     Route: 048
     Dates: start: 20250414, end: 20250415

REACTIONS (12)
  - Deafness [Unknown]
  - White blood cell count decreased [Unknown]
  - Platelet count decreased [Unknown]
  - Tinea pedis [Unknown]
  - Asthenia [Unknown]
  - Bone pain [Unknown]
  - Intervertebral disc degeneration [Unknown]
  - Anxiety [Unknown]
  - Tinnitus [Unknown]
  - Pain in extremity [Unknown]
  - Red blood cell count decreased [Unknown]
  - Blood folate decreased [Unknown]

NARRATIVE: CASE EVENT DATE: 20250101
